FAERS Safety Report 5724238-6 (Version None)
Quarter: 2008Q2

REPORT INFORMATION
  Report Type: 
  Country: None (occurrence: None)
  Receive Date: 20080428
  Receipt Date: 20080417
  Transmission Date: 20081010
  Serious: Yes (Death, Other)
  Sender: FDA-Public Use
  Company Number: 43000IL08NLD

PATIENT
  Sex: Female

DRUGS (3)
  1. MITOXANTRONE HCL [Suspect]
     Indication: ACUTE PROMYELOCYTIC LEUKAEMIA
  2. ATRACURIUM BESYLATE [Suspect]
     Indication: ACUTE PROMYELOCYTIC LEUKAEMIA
  3. IDARUBICIN HCL [Suspect]
     Indication: ACUTE PROMYELOCYTIC LEUKAEMIA

REACTIONS (4)
  - CYTOGENETIC ABNORMALITY [None]
  - HAEMATOMA [None]
  - MYELODYSPLASTIC SYNDROME [None]
  - PNEUMONIA [None]
